FAERS Safety Report 23786883 (Version 2)
Quarter: 2024Q2

REPORT INFORMATION
  Report Type: Spontaneous
  Country: JP (occurrence: JP)
  Receive Date: 20240426
  Receipt Date: 20240515
  Transmission Date: 20240716
  Serious: No
  Sender: FDA-Public Use
  Company Number: JP-UCBJ-CD202403490UCBPHAPROD

PATIENT
  Age: 7 Decade

DRUGS (1)
  1. VIMPAT [Suspect]
     Active Substance: LACOSAMIDE
     Indication: Partial seizures
     Dosage: 200 MILLIGRAM, 2X/12 HOURS
     Route: 048

REACTIONS (1)
  - Bradycardia [Recovered/Resolved]
